FAERS Safety Report 7383907-5 (Version None)
Quarter: 2011Q1

REPORT INFORMATION
  Report Type: 
  Country: None (occurrence: None)
  Receive Date: 20110330
  Receipt Date: 20110324
  Transmission Date: 20110831
  Serious: Yes (Other)
  Sender: FDA-Public Use
  Company Number: US-ABBOTT-11P-163-0714731-00

PATIENT
  Age: 38 Year
  Sex: Female

DRUGS (27)
  1. HUMIRA [Suspect]
     Indication: RHEUMATOID ARTHRITIS
     Dates: start: 20101001
  2. NEURONTIN [Concomitant]
     Indication: NEUROPATHY PERIPHERAL
  3. SALCILATE [Concomitant]
     Indication: PAIN
  4. HUMALOG [Concomitant]
     Indication: DIABETES MELLITUS
     Dosage: WITH EACH MEAL
     Route: 058
  5. CYMBALTA [Concomitant]
     Indication: DEPRESSION
  6. SEROQUEL [Concomitant]
     Indication: DEPRESSION
  7. PREDFORTE EYE [Concomitant]
     Indication: UVEITIS
     Dosage: EVERY 2 HOURS
     Route: 047
  8. FLEXERIL [Concomitant]
     Indication: FIBROMYALGIA
  9. PHENERGAN HCL [Concomitant]
     Indication: NAUSEA
     Dosage: AS NEEDED
  10. ADDERALL 10 [Concomitant]
     Indication: INCREASED APPETITE
  11. FENOFIBRATE [Concomitant]
     Indication: BLOOD CHOLESTEROL INCREASED
  12. AMBIEN [Concomitant]
     Indication: INSOMNIA
     Dosage: AT NIGHT
  13. COZAAR [Concomitant]
     Indication: HYPERTENSION
  14. ATENOLOL [Concomitant]
     Indication: HYPERTENSION
  15. ULTRAM [Concomitant]
     Indication: PAIN
     Dosage: EVERY 4 HOURS
  16. AMATICA [Concomitant]
     Indication: CONSTIPATION
  17. FOLIC ACID [Concomitant]
     Indication: VITAMIN SUPPLEMENTATION
  18. VALTREX [Concomitant]
     Indication: PROPHYLAXIS
  19. LANTUS [Concomitant]
     Indication: DIABETES MELLITUS
     Dosage: AT BEDTIME
     Route: 058
  20. PREDNISONE [Concomitant]
     Indication: RHEUMATOID ARTHRITIS
  21. ADDERALL 10 [Concomitant]
     Indication: ASTHENIA
     Dosage: 1-2 TABLETS DAILY
  22. PAXIL [Concomitant]
     Indication: FIBROMYALGIA
  23. METHOTREXATE [Concomitant]
     Indication: RHEUMATOID ARTHRITIS
     Dosage: 2.5 MILLIGRAMS
  24. DIFLUCAN [Concomitant]
     Indication: FUNGAL INFECTION
     Dosage: AS NEEDED
  25. NEXIUM [Concomitant]
     Indication: HIATUS HERNIA
  26. METFORMIN [Concomitant]
     Indication: DIABETES MELLITUS
  27. VALTREX [Concomitant]
     Indication: HERPES ZOSTER

REACTIONS (4)
  - EYE HAEMORRHAGE [None]
  - GLAUCOMA [None]
  - WRONG TECHNIQUE IN DRUG USAGE PROCESS [None]
  - VISUAL ACUITY REDUCED [None]
